FAERS Safety Report 8835447 (Version 2)
Quarter: 2012Q4

REPORT INFORMATION
  Report Type: 
  Country: US (occurrence: US)
  Receive Date: 20121011
  Receipt Date: 20121030
  Transmission Date: 20130627
  Serious: Yes (Death, Hospitalization)
  Sender: FDA-Public Use
  Company Number: US-BAXTER-2012BAX019405

PATIENT
  Age: 53 Year
  Sex: Female

DRUGS (4)
  1. DIANEAL LOW CALCIUM [Suspect]
     Indication: END STAGE RENAL DISEASE (ESRD)
     Route: 033
     Dates: start: 20111021, end: 20121004
  2. DIANEAL LOW CALCIUM [Suspect]
     Route: 033
     Dates: start: 20111021
  3. DIANEAL LOW CALCIUM [Suspect]
     Indication: END STAGE RENAL DISEASE (ESRD)
     Route: 033
     Dates: start: 20111021, end: 20121004
  4. DIANEAL LOW CALCIUM [Suspect]
     Route: 033
     Dates: start: 20111021

REACTIONS (5)
  - Infection [Fatal]
  - Pseudomonal sepsis [Fatal]
  - Pyrexia [Unknown]
  - Vomiting [Unknown]
  - Peritonitis bacterial [Unknown]
